FAERS Safety Report 8473552-2 (Version None)
Quarter: 2012Q2

REPORT INFORMATION
  Report Type: 
  Country: None (occurrence: None)
  Receive Date: 20120628
  Receipt Date: 20110518
  Transmission Date: 20120825
  Serious: Yes (Death)
  Sender: FDA-Public Use
  Company Number: US-MYLANLABS-2011S1010363

PATIENT
  Age: 83 Year
  Sex: Female

DRUGS (20)
  1. ACETAMINOPHEN [Concomitant]
     Route: 054
  2. SYNTHROID [Concomitant]
  3. MILK OF MAGNESIA TAB [Concomitant]
  4. PROCTOFOAM /00622802/ [Concomitant]
  5. CLOZAPINE [Suspect]
     Route: 048
     Dates: end: 20110501
  6. GLUCAGON [Concomitant]
  7. REMERON [Concomitant]
  8. VALPROIC ACID [Concomitant]
  9. FERROUS SULFATE TAB [Concomitant]
  10. ACETAMINOPHEN [Concomitant]
  11. ASPIRIN [Concomitant]
  12. LORTAB [Concomitant]
  13. LANTUS [Concomitant]
  14. SENOKOT [Concomitant]
  15. GLUCOSE [Concomitant]
  16. DULCOLAX [Concomitant]
  17. LASIX [Concomitant]
  18. GLIPIZIDE [Concomitant]
  19. LACTULOSE [Concomitant]
  20. MULTI-VITAMIN [Concomitant]

REACTIONS (1)
  - DEATH [None]
